FAERS Safety Report 4314122-7 (Version None)
Quarter: 2004Q1

REPORT INFORMATION
  Report Type: 
  Country: None (occurrence: None)
  Receive Date: 20040308
  Receipt Date: 20040308
  Transmission Date: 20041129
  Serious: No
  Sender: FDA-Public Use
  Company Number: None

PATIENT
  Age: 7 Month
  Sex: Male

DRUGS (2)
  1. REGLAN [Suspect]
     Indication: GASTROOESOPHAGEAL REFLUX DISEASE
     Dosage: .5 TID ORAL
     Route: 048
     Dates: start: 20020618, end: 20021210
  2. ZANTAC [Concomitant]

REACTIONS (3)
  - EXTRAPYRAMIDAL DISORDER [None]
  - SEDATION [None]
  - SENSORY DISTURBANCE [None]
